APPROVED DRUG PRODUCT: DEXLANSOPRAZOLE
Active Ingredient: DEXLANSOPRAZOLE
Strength: 30MG
Dosage Form/Route: CAPSULE, DELAYED RELEASE;ORAL
Application: A205205 | Product #001 | TE Code: AB
Applicant: MYLAN PHARMACEUTICALS INC
Approved: Jan 19, 2024 | RLD: No | RS: No | Type: RX